FAERS Safety Report 5347067-4 (Version None)
Quarter: 2007Q2

REPORT INFORMATION
  Report Type: 
  Country: None (occurrence: None)
  Receive Date: 20070604
  Receipt Date: 20070518
  Transmission Date: 20071010
  Serious: Yes (Death, Hospitalization)
  Sender: FDA-Public Use
  Company Number: JPI-P-001390

PATIENT
  Age: 79 Year
  Sex: Male

DRUGS (1)
  1. XYREM [Suspect]
     Indication: DYSSOMNIA
     Dosage: UNKNOWN, ORAL
     Route: 048
     Dates: start: 20050101, end: 20070401

REACTIONS (4)
  - FALL [None]
  - HIP FRACTURE [None]
  - POST PROCEDURAL COMPLICATION [None]
  - UPPER GASTROINTESTINAL HAEMORRHAGE [None]
